FAERS Safety Report 19058195 (Version 1)
Quarter: 2021Q1

REPORT INFORMATION
  Report Type: Spontaneous
  Country: US (occurrence: US)
  Receive Date: 20210324
  Receipt Date: 20210324
  Transmission Date: 20210420
  Serious: No
  Sender: FDA-Public Use
  Company Number: US-TEVA-2021-US-1890007

PATIENT
  Sex: Female

DRUGS (2)
  1. COPAXONE [Suspect]
     Active Substance: GLATIRAMER ACETATE
     Route: 065
  2. AJ2 (DEVICE) [Suspect]
     Active Substance: DEVICE
     Route: 065

REACTIONS (4)
  - Scratch [Unknown]
  - Needle issue [Unknown]
  - Incorrect dose administered by device [Unknown]
  - Pain of skin [Unknown]
